FAERS Safety Report 7761692-2 (Version None)
Quarter: 2011Q3

REPORT INFORMATION
  Report Type: 
  Country: None (occurrence: None)
  Receive Date: 20110920
  Receipt Date: 20110906
  Transmission Date: 20111222
  Serious: Yes (Other)
  Sender: FDA-Public Use
  Company Number: ZW-BRISTOL-MYERS SQUIBB COMPANY-16072910

PATIENT

DRUGS (2)
  1. EFAVIRENZ [Suspect]
     Dosage: HS-AT BEDTIME
     Route: 064
  2. COMBIVIR [Suspect]
     Dosage: 1DF : 150/300MG,LAST DOSE ON 03JUN09
     Route: 064

REACTIONS (1)
  - INTRA-UTERINE DEATH [None]
